FAERS Safety Report 5885887-8 (Version None)
Quarter: 2008Q3

REPORT INFORMATION
  Report Type: 
  Country: None (occurrence: None)
  Receive Date: 20080917
  Receipt Date: 20080912
  Transmission Date: 20090109
  Serious: Yes (Death, Other)
  Sender: FDA-Public Use
  Company Number: FR-CELGENEUS-056-C5013-07121305

PATIENT
  Sex: Female

DRUGS (15)
  1. REVLIMID [Suspect]
     Indication: 5Q MINUS SYNDROME
     Route: 048
     Dates: start: 20051231, end: 20060301
  2. ATENOLOL [Concomitant]
     Indication: TACHYCARDIA
     Route: 048
     Dates: start: 20040901, end: 20060413
  3. DEFEROXAMINE MESILATE [Concomitant]
     Indication: PROPHYLAXIS
     Route: 051
     Dates: start: 20050811, end: 20060413
  4. DILTIAZEM [Concomitant]
     Indication: TOXIC SHOCK SYNDROME
     Route: 048
     Dates: start: 20060412, end: 20060412
  5. AMOXICILLIN W/CLAVULANIC ACID [Concomitant]
     Indication: LUNG INFECTION
     Route: 048
     Dates: start: 20060327, end: 20060330
  6. OFLOXACIN [Concomitant]
     Indication: LUNG INFECTION
     Route: 048
     Dates: start: 20060327, end: 20060329
  7. OFLOXACIN [Concomitant]
     Route: 051
     Dates: start: 20060330, end: 20060410
  8. CEFTRIAXONE [Concomitant]
     Indication: LUNG INFECTION
     Route: 051
     Dates: start: 20060330, end: 20060410
  9. PRISTINAMYCIN [Concomitant]
     Indication: LUNG INFECTION
     Route: 048
     Dates: start: 20060410, end: 20060412
  10. METHYLPREDNISOLONE 16MG TAB [Concomitant]
     Indication: LUNG INFECTION
     Route: 051
     Dates: start: 20060408, end: 20060413
  11. NOREPINEPHRINE [Concomitant]
     Indication: TOXIC SHOCK SYNDROME
     Route: 051
     Dates: start: 20060412, end: 20060412
  12. CALCIUM GLUCONATE [Concomitant]
     Indication: HYPERKALAEMIA
     Route: 051
     Dates: start: 20060412, end: 20060412
  13. INSULIN [Concomitant]
     Indication: HYPERKALAEMIA
     Route: 051
     Dates: start: 20060412, end: 20060412
  14. IMIPENEM [Concomitant]
     Indication: LUNG INFECTION
     Route: 051
     Dates: start: 20060412, end: 20060413
  15. AMIKACIN [Concomitant]
     Indication: LUNG INFECTION
     Route: 051
     Dates: start: 20060412, end: 20060413

REACTIONS (3)
  - ACUTE MYELOID LEUKAEMIA [None]
  - MYELODYSPLASTIC SYNDROME [None]
  - SEPTIC SHOCK [None]
